FAERS Safety Report 6345439-2 (Version None)
Quarter: 2009Q3

REPORT INFORMATION
  Report Type: 
  Country: None (occurrence: None)
  Receive Date: 20090909
  Receipt Date: 20090903
  Transmission Date: 20100115
  Serious: Yes (Life-Threatening, Hospitalization)
  Sender: FDA-Public Use
  Company Number: JP-AVENTIS-200912336JP

PATIENT
  Age: 72 Year
  Sex: Female
  Weight: 42.75 kg

DRUGS (5)
  1. TAXOTERE [Suspect]
     Route: 041
     Dates: start: 20070222, end: 20070222
  2. PARAPLATIN [Suspect]
     Route: 041
     Dates: start: 20070222, end: 20070222
  3. 5-FU                               /00098801/ [Suspect]
     Route: 041
     Dates: start: 20070222, end: 20070222
  4. KYTRIL                             /01178101/ [Concomitant]
     Route: 041
     Dates: start: 20070222, end: 20070225
  5. RINDERON                           /00008501/ [Concomitant]
     Route: 041
     Dates: start: 20070222, end: 20070225

REACTIONS (5)
  - COMA [None]
  - INAPPROPRIATE ANTIDIURETIC HORMONE SECRETION [None]
  - METABOLIC ACIDOSIS [None]
  - SCREAMING [None]
  - TREMOR [None]
